FAERS Safety Report 9738877 (Version 1)
Quarter: 2013Q4

REPORT INFORMATION
  Report Type: Spontaneous
  Country: US (occurrence: US)
  Receive Date: 20131209
  Receipt Date: 20131209
  Transmission Date: 20140711
  Serious: No
  Sender: FDA-Public Use
  Company Number: US-PFIZER INC-2013351155

PATIENT
  Sex: Female

DRUGS (2)
  1. LYRICA [Suspect]
     Indication: FIBROMYALGIA
     Dosage: 225 MG (THREE 75MG IN A DAY), UNK
     Dates: start: 2013
  2. VALIUM [Concomitant]
     Dosage: UNK

REACTIONS (5)
  - Impaired driving ability [Unknown]
  - Gait disturbance [Unknown]
  - Malaise [Unknown]
  - Somnolence [Unknown]
  - Drug intolerance [Unknown]
